FAERS Safety Report 8065176-6 (Version None)
Quarter: 2012Q1

REPORT INFORMATION
  Report Type: 
  Country: None (occurrence: None)
  Receive Date: 20120124
  Receipt Date: 20120112
  Transmission Date: 20120608
  Serious: Yes (Other)
  Sender: FDA-Public Use
  Company Number: US-BAYER-2011-073439

PATIENT
  Age: 51 Year
  Sex: Female
  Weight: 70 kg

DRUGS (4)
  1. MOTRIN [Concomitant]
     Dosage: UNK
     Route: 048
     Dates: start: 20090727
  2. VICODIN [Concomitant]
     Dosage: UNK
     Route: 048
     Dates: start: 20090727
  3. YAZ [Suspect]
     Dosage: UNK
     Dates: start: 20090601, end: 20090801
  4. CIPROFLOXACIN [Concomitant]
     Dosage: 250 MG, UNK
     Route: 048
     Dates: start: 20090716

REACTIONS (3)
  - DEEP VEIN THROMBOSIS [None]
  - PAIN [None]
  - MENTAL DISORDER [None]
